FAERS Safety Report 6023123-2 (Version None)
Quarter: 2008Q4

REPORT INFORMATION
  Report Type: 
  Country: None (occurrence: None)
  Receive Date: 20081222
  Receipt Date: 20080922
  Transmission Date: 20090506
  Serious: No
  Sender: FDA-Public Use
  Company Number: ALL1-2008-02715

PATIENT
  Age: 19 Year
  Sex: Female
  Weight: 63.5 kg

DRUGS (3)
  1. VYVANSE [Suspect]
     Indication: ATTENTION DEFICIT/HYPERACTIVITY DISORDER
     Dosage: 100 MG, 1X/DAY:QD GIVEN AS ONE 30 MG AND ONE 70 MG, ORAL
     Route: 048
     Dates: start: 20080908
  2. LAMICTAL [Concomitant]
  3. TRILEPTAL [Concomitant]

REACTIONS (2)
  - NIGHTMARE [None]
  - OVERDOSE [None]
